FAERS Safety Report 5371478-4 (Version None)
Quarter: 2007Q2

REPORT INFORMATION
  Report Type: 
  Country: None (occurrence: None)
  Receive Date: 20070622
  Receipt Date: 20070614
  Transmission Date: 20071010
  Serious: Yes (Other)
  Sender: FDA-Public Use
  Company Number: 163-21880-07060802

PATIENT

DRUGS (3)
  1. REVLIMID [Suspect]
     Indication: NEOPLASM
     Dosage: SEE IMAGE
     Route: 048
  2. DOCETAXEL (DOCETAXEL) [Suspect]
     Indication: NEOPLASM
     Dosage: 60 MG/M2
  3. CARBOPLATIN [Suspect]
     Indication: NEOPLASM
     Dosage: AUC 6, DAY 1

REACTIONS (4)
  - DISEASE PROGRESSION [None]
  - ELECTROLYTE IMBALANCE [None]
  - NEUTROPENIA [None]
  - THROMBOCYTOPENIA [None]
